FAERS Safety Report 10659738 (Version 2)
Quarter: 2014Q4

REPORT INFORMATION
  Report Type: Spontaneous
  Country: FR (occurrence: FR)
  Receive Date: 20141217
  Receipt Date: 20141231
  Transmission Date: 20150529
  Serious: Yes (Other)
  Sender: FDA-Public Use
  Company Number: FR-PFIZER INC-2014344649

PATIENT
  Age: 53 Year
  Sex: Female

DRUGS (12)
  1. FUNGIZONE [Suspect]
     Active Substance: AMPHOTERICIN B
     Route: 002
  2. IMOVANE [Concomitant]
     Active Substance: ZOPICLONE
     Dosage: 0.5 DF, 1X/DAY
  3. PENTACARINAT [Suspect]
     Active Substance: PENTAMIDINE ISETHIONATE
     Dosage: UNK
     Route: 055
     Dates: end: 20141105
  4. TOPALGIC [Suspect]
     Active Substance: TRAMADOL
     Dosage: 50 MG, 4X/DAY
     Route: 042
     Dates: start: 20141105, end: 20141106
  5. ZYLORIC [Suspect]
     Active Substance: ALLOPURINOL
     Dosage: 300 MG, 2X/DAY
     Route: 048
     Dates: end: 20141106
  6. ZELITREX [Suspect]
     Active Substance: VALACYCLOVIR HYDROCHLORIDE
     Dosage: 500 MG, 1X/DAY
     Route: 048
     Dates: end: 20141111
  7. BICARBONATE [Concomitant]
     Active Substance: BICARBONATE ION
     Route: 002
  8. INEXIUM /01479302/ [Suspect]
     Active Substance: ESOMEPRAZOLE MAGNESIUM
     Dosage: 20 MG, 1X/DAY
     Route: 048
     Dates: end: 20141111
  9. LEXOMIL [Suspect]
     Active Substance: BROMAZEPAM
     Dosage: 6 MG, 1X/DAY
     Route: 048
     Dates: end: 20141106
  10. AMLOR [Suspect]
     Active Substance: AMLODIPINE BESYLATE
     Dosage: 5 MG, 2X/DAY
     Route: 048
     Dates: end: 20141111
  11. NOXAFIL [Suspect]
     Active Substance: POSACONAZOLE
     Dosage: 200 MG, 3X/DAY
     Route: 048
     Dates: end: 20141111
  12. PRIMPERAN [Suspect]
     Active Substance: METOCLOPRAMIDE HYDROCHLORIDE
     Dosage: 30 MG, DAILY
     Route: 042
     Dates: start: 20141105, end: 20141106

REACTIONS (1)
  - Toxic skin eruption [Recovering/Resolving]

NARRATIVE: CASE EVENT DATE: 20141106
